FAERS Safety Report 8406018 (Version 7)
Quarter: 2012Q4

REPORT INFORMATION
  Report Type: Report from Study
  Country: JP (occurrence: JP)
  Receive Date: 20120215
  Receipt Date: 20120918
  Transmission Date: 20130627
  Serious: Yes (Other)
  Sender: FDA-Public Use
  Company Number: JP-JNJFOC-20120203328

PATIENT
  Age: 47 Year
  Sex: Male
  Weight: 72 kg

DRUGS (7)
  1. USTEKINUMAB [Suspect]
     Indication: PSORIATIC ARTHROPATHY
     Route: 058
     Dates: start: 20111129
  2. USTEKINUMAB [Suspect]
     Indication: PSORIATIC ARTHROPATHY
     Route: 058
     Dates: start: 20111101
  3. LORATADINE [Concomitant]
     Route: 048
     Dates: end: 20120323
  4. CLOBETASOL PROPIONATE [Concomitant]
     Route: 061
     Dates: end: 20120323
  5. DIFLORASONE DIACETATE [Concomitant]
     Route: 061
     Dates: end: 20120323
  6. MAXACALCITOL [Concomitant]
     Route: 061
     Dates: end: 20120323
  7. WHITE PETROLEUM [Concomitant]
     Route: 061
     Dates: end: 20120323

REACTIONS (1)
  - Appendicitis [Recovering/Resolving]
